APPROVED DRUG PRODUCT: FLUXID
Active Ingredient: FAMOTIDINE
Strength: 40MG
Dosage Form/Route: TABLET, ORALLY DISINTEGRATING;ORAL
Application: N021712 | Product #002
Applicant: UCB INC
Approved: Sep 24, 2004 | RLD: No | RS: No | Type: DISCN